FAERS Safety Report 5892047-3 (Version None)
Quarter: 2008Q3

REPORT INFORMATION
  Report Type: 
  Country: None (occurrence: None)
  Receive Date: 20080922
  Receipt Date: 20080916
  Transmission Date: 20090109
  Serious: Yes (Hospitalization)
  Sender: FDA-Public Use
  Company Number: JP-B.I. PHARMACEUTICALS,INC./RIDGEFIELD-2008-BP-03999NB

PATIENT
  Sex: Female

DRUGS (7)
  1. MICARDIS [Suspect]
     Indication: HYPERTENSION
     Dosage: 40MG
     Route: 048
     Dates: start: 20060906
  2. LASIX [Concomitant]
     Dosage: 20MG
     Route: 048
  3. ASPIRIN [Concomitant]
     Dosage: 100MG
     Route: 048
     Dates: end: 20080201
  4. ISOSORBIDE DINITRATE [Concomitant]
     Dosage: 1ANZ
     Route: 062
     Dates: end: 20080201
  5. HOKUNALIN:TAPE (TULOBUTEROL) [Concomitant]
     Dosage: 1ANZ
     Route: 062
     Dates: end: 20080201
  6. PRAVASTATIN SODIUM [Concomitant]
     Dosage: 10MG
     Route: 048
     Dates: end: 20080201
  7. BASEN [Concomitant]
     Dosage: .6MG
     Route: 048
     Dates: end: 20080201

REACTIONS (1)
  - CARDIAC FAILURE [None]
